FAERS Safety Report 4883664-8 (Version None)
Quarter: 2006Q1

REPORT INFORMATION
  Report Type: 
  Country: None (occurrence: None)
  Receive Date: 20060118
  Receipt Date: 20060106
  Transmission Date: 20060701
  Serious: Yes (Hospitalization)
  Sender: FDA-Public Use
  Company Number: US-SANOFI-SYNTHELABO-F01200600047

PATIENT
  Sex: Male
  Weight: 73.6 kg

DRUGS (7)
  1. OXALIPLATIN [Suspect]
     Indication: COLORECTAL CANCER METASTATIC
     Route: 042
     Dates: start: 20051012, end: 20051012
  2. FLUOROURACIL [Suspect]
     Dosage: 2400 MG/M2 IV ON DAY 1 AND DAY 2, Q2W
     Route: 042
     Dates: start: 20060104, end: 20060105
  3. LEUCOVORIN [Suspect]
     Route: 042
     Dates: start: 20060104, end: 20060104
  4. BEVACIZUMAB [Suspect]
     Route: 042
     Dates: start: 20060104, end: 20060104
  5. CA/MG OR PLACEBO [Suspect]
     Route: 042
     Dates: start: 20051012, end: 20051012
  6. AMIODARONE HCL [Concomitant]
     Indication: ATRIAL FIBRILLATION
     Dosage: 200 MG
     Dates: start: 20001127
  7. METOPROLOL [Concomitant]
     Indication: HYPERTENSION
     Dates: start: 20020612

REACTIONS (1)
  - CEREBROVASCULAR ACCIDENT [None]
